FAERS Safety Report 7497230-1 (Version None)
Quarter: 2011Q2

REPORT INFORMATION
  Report Type: 
  Country: None (occurrence: None)
  Receive Date: 20110523
  Receipt Date: 20110518
  Transmission Date: 20111010
  Serious: No
  Sender: FDA-Public Use
  Company Number: US-PFIZER INC-2011107584

PATIENT
  Sex: Male
  Weight: 117.91 kg

DRUGS (2)
  1. CODEINE SULFATE [Suspect]
     Indication: INSOMNIA
     Dosage: UNK
     Dates: start: 20110517
  2. ADVIL LIQUI-GELS [Suspect]
     Indication: MUSCLE STRAIN
     Dosage: UNK
     Route: 048
     Dates: start: 20110516, end: 20110501

REACTIONS (3)
  - DRUG INEFFECTIVE [None]
  - FEELING ABNORMAL [None]
  - NAUSEA [None]
